FAERS Safety Report 6829029-0 (Version None)
Quarter: 2010Q3

REPORT INFORMATION
  Report Type: 
  Country: None (occurrence: None)
  Receive Date: 20100706
  Receipt Date: 20100621
  Transmission Date: 20110219
  Serious: Yes (Life-Threatening)
  Sender: FDA-Public Use
  Company Number: 1000014808

PATIENT
  Age: 85 Year
  Sex: Female

DRUGS (8)
  1. MEMANTINE HCL [Suspect]
     Indication: DEMENTIA ALZHEIMER'S TYPE
     Dosage: 20MG (20MG, 1 IN 1D), ORAL
     Route: 048
  2. MEMANTINE HCL [Suspect]
     Indication: DEMENTIA ALZHEIMER'S TYPE
     Dosage: ORAL
     Route: 048
  3. CLOPIXOL (SOLUTION) [Suspect]
     Indication: DEMENTIA ALZHEIMER'S TYPE
     Dosage: 10MG (10MG, 1 IN 1 D), ORAL
     Route: 048
  4. MEMAC (TABLETS) [Suspect]
     Indication: DEMENTIA ALZHEIMER'S TYPE
     Dosage: 10MG (10MG, 1 IN 1D), ORAL
     Route: 048
  5. MEMAC (TABLETS) [Suspect]
     Indication: DEMENTIA ALZHEIMER'S TYPE
     Dosage: ORAL
     Route: 048
  6. ATORVASTATINA (TABLETS) [Concomitant]
  7. CARDIOASPIRIN (TABLETS) [Concomitant]
  8. CARDIOASPIRIN (TABLETS) [Concomitant]

REACTIONS (3)
  - ATRIOVENTRICULAR BLOCK COMPLETE [None]
  - ELECTROCARDIOGRAM QT PROLONGED [None]
  - OFF LABEL USE [None]
